FAERS Safety Report 4350528-8 (Version None)
Quarter: 2004Q2

REPORT INFORMATION
  Report Type: 
  Country: None (occurrence: None)
  Receive Date: 20040429
  Receipt Date: 20040429
  Transmission Date: 20050107
  Serious: Yes (Hospitalization)
  Sender: FDA-Public Use
  Company Number: None

PATIENT
  Age: 36 Year
  Sex: Female
  Weight: 72 kg

DRUGS (2)
  1. LAMICTAL [Suspect]
     Indication: CONVULSION
     Dosage: 75MG BID ORAL
     Route: 048
     Dates: start: 20040405, end: 20040422
  2. BACTRIM [Suspect]
     Indication: LYMPHADENOPATHY
     Dosage: ONE DOSE ORAL
     Route: 048
     Dates: start: 20040419, end: 20040419

REACTIONS (1)
  - RASH [None]
